FAERS Safety Report 9516343 (Version 1)
Quarter: 2013Q3

REPORT INFORMATION
  Report Type: Spontaneous
  Country: US (occurrence: US)
  Receive Date: 20130911
  Receipt Date: 20130911
  Transmission Date: 20140515
  Serious: No
  Sender: FDA-Public Use
  Company Number: US-BAYER-2013-109376

PATIENT
  Age: 53 Year
  Sex: Female

DRUGS (3)
  1. MIRENA [Suspect]
     Indication: HYPERPLASIA
     Dosage: 20 MCG/24HR, CONT
     Route: 015
     Dates: start: 20130221, end: 20130905
  2. MIRENA [Suspect]
     Indication: MENORRHAGIA
  3. MIRENA [Suspect]
     Indication: CONTRACEPTION

REACTIONS (3)
  - Pain [None]
  - Discomfort [None]
  - Device expulsion [None]
